FAERS Safety Report 15235707 (Version 3)
Quarter: 2018Q3

REPORT INFORMATION
  Report Type: Report from Study
  Country: US (occurrence: US)
  Receive Date: 20180803
  Receipt Date: 20180907
  Transmission Date: 20181010
  Serious: Yes (Hospitalization, Other)
  Sender: FDA-Public Use
  Company Number: US-TESARO, INC.-US-2018TSO03769

PATIENT
  Age: 73 Year
  Sex: Female

DRUGS (2)
  1. ZEJULA [Suspect]
     Active Substance: NIRAPARIB
     Indication: MALIGNANT PERITONEAL NEOPLASM
     Dosage: 200 MG, QD
     Route: 048
     Dates: end: 20180717
  2. ZEJULA [Suspect]
     Active Substance: NIRAPARIB
     Indication: RETROPERITONEAL CANCER
     Dosage: 200 MG, QD
     Route: 048
     Dates: start: 20180528

REACTIONS (19)
  - Red blood cell count decreased [Unknown]
  - White blood cell count decreased [Unknown]
  - Blood count abnormal [Recovering/Resolving]
  - Constipation [Recovering/Resolving]
  - Platelet count decreased [Unknown]
  - Tremor [Not Recovered/Not Resolved]
  - Intentional underdose [Not Recovered/Not Resolved]
  - Decreased appetite [Not Recovered/Not Resolved]
  - Asthenia [Not Recovered/Not Resolved]
  - Infection [Unknown]
  - Urinary tract infection [Not Recovered/Not Resolved]
  - Malaise [Unknown]
  - Tumour marker increased [Not Recovered/Not Resolved]
  - Product use in unapproved indication [Not Recovered/Not Resolved]
  - Nausea [Not Recovered/Not Resolved]
  - Fatigue [Not Recovered/Not Resolved]
  - Dehydration [Unknown]
  - Diverticulitis [Unknown]
  - Carbohydrate antigen 125 increased [Unknown]

NARRATIVE: CASE EVENT DATE: 20180528
